FAERS Safety Report 4270315-9 (Version None)
Quarter: 2004Q1

REPORT INFORMATION
  Report Type: 
  Country: None (occurrence: None)
  Receive Date: 20040113
  Receipt Date: 20040113
  Transmission Date: 20041129
  Serious: No
  Sender: FDA-Public Use
  Company Number: None

PATIENT
  Age: 61 Year
  Sex: Female

DRUGS (1)
  1. ENOXAPARIN SODIUM [Suspect]
     Dosage: 80 MG SC Q12 H
     Route: 058
     Dates: start: 20030610, end: 20030619

REACTIONS (2)
  - MEDICATION ERROR [None]
  - VAGINAL HAEMORRHAGE [None]
